FAERS Safety Report 8494154 (Version 2)
Quarter: 2012Q4

REPORT INFORMATION
  Report Type: 
  Country: US (occurrence: US)
  Receive Date: 20120404
  Receipt Date: 20121203
  Transmission Date: 20130627
  Serious: Yes (Hospitalization)
  Sender: FDA-Public Use
  Company Number: US-GLAXOSMITHKLINE-A0910414A

PATIENT
  Age: 53 Year
  Sex: Male

DRUGS (2)
  1. AVANDIA [Suspect]
     Indication: DIABETES MELLITUS
     Dosage: 8MG Per day
     Route: 048
     Dates: start: 20060517, end: 2008
  2. AVANDARYL [Suspect]
     Indication: DIABETES MELLITUS
     Route: 065
     Dates: start: 20061121, end: 2007

REACTIONS (1)
  - Myocardial infarction [Unknown]
